FAERS Safety Report 9148870 (Version 2)
Quarter: 2013Q2

REPORT INFORMATION
  Report Type: Spontaneous
  Country: DE (occurrence: DE)
  Receive Date: 20130308
  Receipt Date: 20130607
  Transmission Date: 20140414
  Serious: Yes (Other)
  Sender: FDA-Public Use
  Company Number: DE-INCYTE CORPORATION-2013IN000461

PATIENT
  Age: 70 Year
  Sex: Male
  Weight: 90 kg

DRUGS (13)
  1. JAKAVI [Suspect]
     Indication: MYELOFIBROSIS
     Dosage: 20 MG, BID
     Route: 048
     Dates: start: 20121124, end: 20130116
  2. JAKAVI [Suspect]
     Dosage: 20 MG, QD
     Route: 048
     Dates: start: 20130117, end: 20130220
  3. NEBILET [Concomitant]
     Dosage: UNK
  4. CARMEN ACE [Concomitant]
  5. RAMIPRIL 1A PHARMA [Concomitant]
     Dosage: UNK
  6. RAMIPRIL COMP [Concomitant]
     Dosage: UNK
  7. APSOMOL [Concomitant]
  8. SIMVA [Concomitant]
     Dosage: UNK
  9. VIANI [Concomitant]
     Dosage: UNK
  10. PRAMIPEXOLE [Concomitant]
     Dosage: UNK
  11. ALLOPURINOL [Concomitant]
  12. TORASEMIDE [Concomitant]
  13. SYREA [Concomitant]

REACTIONS (2)
  - Dyspnoea [Recovering/Resolving]
  - Pulmonary arterial hypertension [Unknown]
